FAERS Safety Report 7930270-4 (Version None)
Quarter: 2011Q4

REPORT INFORMATION
  Report Type: 
  Country: None (occurrence: None)
  Receive Date: 20111121
  Receipt Date: 20111110
  Transmission Date: 20120403
  Serious: Yes (Other)
  Sender: FDA-Public Use
  Company Number: JP-ASTRAZENECA-2011SE58299

PATIENT
  Age: 16 Year
  Sex: Male

DRUGS (6)
  1. PROPOFOL [Suspect]
     Indication: INDUCTION OF ANAESTHESIA
     Dosage: DOSE UNKNOWN
     Route: 042
  2. ROCURONIUM BROMIDE [Concomitant]
     Indication: HYPOTONIA
     Dosage: DOSE UNKNOWN
     Route: 065
  3. REMIFENTANIL HYDROCHLORIDE [Concomitant]
     Indication: MAINTENANCE OF ANAESTHESIA
     Dosage: DOSE UNKNOWN
     Route: 065
  4. CEFOTIAM HYDROCHLORIDE [Concomitant]
     Dosage: DOSE UNKNOWN
     Route: 041
  5. SEVOFLURANE [Concomitant]
     Indication: MAINTENANCE OF ANAESTHESIA
     Dosage: DOSE UNKNOWN
     Route: 055
  6. OXYGEN [Concomitant]
     Indication: MAINTENANCE OF ANAESTHESIA
     Dosage: DOSE UNKNOWN
     Route: 055

REACTIONS (1)
  - ANAPHYLACTIC SHOCK [None]
